FAERS Safety Report 19083712 (Version 1)
Quarter: 2021Q2

REPORT INFORMATION
  Report Type: Spontaneous
  Country: DE (occurrence: DE)
  Receive Date: 20210401
  Receipt Date: 20210401
  Transmission Date: 20210717
  Serious: Yes (Life-Threatening, Other)
  Sender: FDA-Public Use
  Company Number: DE-TEVA-2021-DE-1895231

PATIENT
  Age: 52 Year
  Sex: Male
  Weight: 75 kg

DRUGS (5)
  1. VIMPAT [Concomitant]
     Active Substance: LACOSAMIDE
  2. GABAPENTIN. [Concomitant]
     Active Substance: GABAPENTIN
  3. STILNOX FILMTABLETTEN [Suspect]
     Active Substance: ZOLPIDEM TARTRATE
     Dosage: SALES HISTORY: 18.02.2021 ? 02.03.2021
     Dates: start: 2021
  4. ZOLPIDEM?RATIOPHARM 10 MG FILMTABLETTEN [Suspect]
     Active Substance: ZOLPIDEM TARTRATE
     Dosage: SALES HISTORY:18.02.2021 ? 02.03.2021
     Dates: start: 2021
  5. QUETIAPIN [Concomitant]
     Active Substance: QUETIAPINE

REACTIONS (1)
  - Drug abuse [Unknown]

NARRATIVE: CASE EVENT DATE: 20210218
